FAERS Safety Report 6361495-X (Version None)
Quarter: 2009Q3

REPORT INFORMATION
  Report Type: 
  Country: None (occurrence: None)
  Receive Date: 20090918
  Receipt Date: 20090910
  Transmission Date: 20100115
  Serious: Yes (Other)
  Sender: FDA-Public Use
  Company Number: DE-BAYER-200928114GPV

PATIENT
  Age: 79 Year
  Sex: Male
  Weight: 72 kg

DRUGS (8)
  1. NEXAVAR [Suspect]
     Indication: HEPATIC NEOPLASM MALIGNANT
     Dates: start: 20090401, end: 20090801
  2. BISOPROLOL [Concomitant]
     Dosage: 1-0-0
  3. ACETYLSALICYLIC ACID [Concomitant]
     Dosage: 0-1-0
  4. RAMIPRIL [Concomitant]
     Dosage: 1-0-0
  5. PANTOPRAZOLE SODIUM [Concomitant]
     Dosage: 1-0-0
  6. INSULIN ACTRAPHANE [Concomitant]
     Dosage: 32-0-18 IU
  7. INSULIN ACTRAPID [Concomitant]
     Dosage: ACCORDING TO SCHEDULE
  8. OCTREOTIDE ACETATE [Concomitant]
     Indication: HEPATIC NEOPLASM MALIGNANT

REACTIONS (3)
  - DIARRHOEA [None]
  - LABORATORY TEST ABNORMAL [None]
  - RENAL FAILURE ACUTE [None]
